FAERS Safety Report 16658723 (Version 1)
Quarter: 2019Q3

REPORT INFORMATION
  Report Type: Spontaneous
  Country: US (occurrence: US)
  Receive Date: 20190801
  Receipt Date: 20190801
  Transmission Date: 20191004
  Serious: Yes (Other)
  Sender: FDA-Public Use
  Company Number: US-BIOMARINAP-US-2019-124970

PATIENT
  Age: 12 Year
  Sex: Female

DRUGS (1)
  1. NAGLAZYME [Suspect]
     Active Substance: GALSULFASE
     Indication: MUCOPOLYSACCHARIDOSIS
     Dosage: 45 MILLIGRAM, QW
     Route: 042
     Dates: start: 20190620

REACTIONS (2)
  - Spinal stenosis [Unknown]
  - Scoliosis [Unknown]

NARRATIVE: CASE EVENT DATE: 20190404
